FAERS Safety Report 13796507 (Version 1)
Quarter: 2017Q3

REPORT INFORMATION
  Report Type: Report from Study
  Country: US (occurrence: US)
  Receive Date: 20170726
  Receipt Date: 20170726
  Transmission Date: 20171127
  Serious: Yes (Other)
  Sender: FDA-Public Use
  Company Number: US-AMGEN-USASL2017053521

PATIENT
  Age: 69 Year
  Sex: Male

DRUGS (1)
  1. KYPROLIS [Suspect]
     Active Substance: CARFILZOMIB
     Indication: PLASMA CELL MYELOMA
     Dosage: UNK, D 1,8,15 Q 28 DAYS (1 DAY WEEKLY X 3 WEEKS WITH A 1 WEEK REST)
     Route: 065

REACTIONS (3)
  - Hypocalcaemia [Unknown]
  - Off label use [Unknown]
  - Hypokalaemia [Unknown]
